FAERS Safety Report 16261766 (Version 3)
Quarter: 2019Q2

REPORT INFORMATION
  Report Type: Spontaneous
  Country: US (occurrence: US)
  Receive Date: 20190501
  Receipt Date: 20190624
  Transmission Date: 20190711
  Serious: Yes (Other)
  Sender: FDA-Public Use
  Company Number: US-PFIZER INC-2019183581

PATIENT
  Age: 37 Year
  Sex: Female
  Weight: 111.38 kg

DRUGS (19)
  1. COLACE [Concomitant]
     Active Substance: DOCUSATE SODIUM
     Dosage: 100 MG, 2X/DAY
     Route: 048
  2. BACLOFEN. [Concomitant]
     Active Substance: BACLOFEN
     Indication: MUSCLE SPASMS
     Dosage: 20 MG, AS NEEDED (THREE TIMES DAILY)
  3. BACLOFEN. [Concomitant]
     Active Substance: BACLOFEN
     Indication: HEADACHE
  4. HYDROCODONE/ACETAMINOPHEN [Concomitant]
     Active Substance: ACETAMINOPHEN\HYDROCODONE
     Dosage: 1 DF, AS NEEDED (HYDROCODONE: 5MG; ACETAMINOPHEN: 325 MG; EVERY 6 HOURS)
     Route: 048
  5. GABAPENTIN. [Concomitant]
     Active Substance: GABAPENTIN
     Indication: NEURALGIA
     Dosage: 600 MG, DAILY (TAKE 2 CAPSULES IN AM, 2 CAPSULES IN AFTERNOON, AND 2 CAPSULES IN PM)
  6. LORAZEPAM. [Concomitant]
     Active Substance: LORAZEPAM
     Dosage: UNK, AS NEEDED (1-4 TABS UP TO 3 TIMES A DAY AS NEEDED)
  7. LAMICTAL [Concomitant]
     Active Substance: LAMOTRIGINE
     Dosage: 400 MG, DAILY
  8. CLARITINE [Concomitant]
     Active Substance: LORATADINE
     Dosage: 100 MG, DAILY
     Route: 048
  9. VENTOLIN HFA [Concomitant]
     Active Substance: ALBUTEROL SULFATE
     Dosage: UNK (2 PUFFS EVER)
  10. TOPAMAX [Concomitant]
     Active Substance: TOPIRAMATE
     Dosage: 200 MG, 2X/DAY
     Route: 048
  11. GEODON [Suspect]
     Active Substance: ZIPRASIDONE HYDROCHLORIDE\ZIPRASIDONE MESYLATE
     Indication: BIPOLAR DISORDER
     Dosage: UNK
     Route: 048
     Dates: start: 20160412, end: 20160418
  12. OMEPRAZOLE. [Concomitant]
     Active Substance: OMEPRAZOLE
     Dosage: 20 MG, DAILY
     Route: 048
  13. METFORMIN HCL [Concomitant]
     Active Substance: METFORMIN HYDROCHLORIDE
     Dosage: 1000 MG, 2X/DAY (TAKE 2 TABLETS TWO TIMES A DAY)
  14. VITAMIN B12 [Concomitant]
     Active Substance: CYANOCOBALAMIN
     Dosage: 100 UG, DAILY
     Route: 048
  15. NORTRIPTYLINE [Concomitant]
     Active Substance: NORTRIPTYLINE
     Dosage: 25 MG, 1X/DAY  (TAKE 1 CAP BEFORE BED)
     Route: 048
  16. GLIPIZIDE. [Concomitant]
     Active Substance: GLIPIZIDE
     Dosage: 15 MG, DAILY  (1 TAB BY MOUTH IN THE AM AND 2 TABS WITH DINNER)
     Route: 048
  17. ABILIFY [Concomitant]
     Active Substance: ARIPIPRAZOLE
     Dosage: 30 MG, DAILY
     Route: 048
  18. VIT D [Concomitant]
     Active Substance: VITAMIN D NOS
     Dosage: 2000 IU, DAILY
     Route: 048
  19. FLURBIPROFEN. [Concomitant]
     Active Substance: FLURBIPROFEN
     Dosage: 100 MG, AS NEEDED (TAKE 1 TABLET TID (THRICE IN DAY) AS NEEDED)

REACTIONS (12)
  - Drug hypersensitivity [Unknown]
  - Diabetes mellitus inadequate control [Unknown]
  - Pollakiuria [Unknown]
  - Micturition urgency [Unknown]
  - Cough [Recovered/Resolved]
  - Hypoglycaemia [Unknown]
  - Dyspnoea [Recovered/Resolved]
  - Anaphylactic reaction [Unknown]
  - Urinary tract infection [Unknown]
  - Eructation [Unknown]
  - Affective disorder [Unknown]
  - Oedema [Unknown]

NARRATIVE: CASE EVENT DATE: 20160419
